FAERS Safety Report 8420852-8 (Version None)
Quarter: 2012Q2

REPORT INFORMATION
  Report Type: 
  Country: None (occurrence: None)
  Receive Date: 20120608
  Receipt Date: 20120601
  Transmission Date: 20120825
  Serious: Yes (Hospitalization)
  Sender: FDA-Public Use
  Company Number: US-BAYER-2012-023820

PATIENT
  Age: 28 Year
  Sex: Female

DRUGS (8)
  1. LORAZEPAM [Concomitant]
     Dosage: 1 MG, UNK
     Dates: start: 20080808
  2. OXYCODONE HCL AND ACETAMINOPHEN [Concomitant]
     Dosage: ONE TAB EVERY 8 HOURS
     Dates: start: 20080902
  3. YAZ [Suspect]
     Dosage: UNK
     Dates: start: 20080201
  4. LIDODERM [Concomitant]
     Dosage: UNK
     Dates: start: 20080807
  5. ALBUTEROL SULFATE [Concomitant]
     Dosage: 90MCG INHALER FOUR TIMES DAILY
     Route: 045
     Dates: start: 20080902
  6. TRETINOIN [Concomitant]
     Dosage: UNK
     Dates: start: 20080902
  7. YASMIN [Suspect]
     Dosage: UNK
     Dates: start: 20080201
  8. DICLOFENAC [Concomitant]
     Dosage: 50 MG, BID
     Dates: start: 20080902

REACTIONS (1)
  - DEEP VEIN THROMBOSIS [None]
